FAERS Safety Report 9583558 (Version 1)
Quarter: 2013Q4

REPORT INFORMATION
  Report Type: Spontaneous
  Country: US (occurrence: US)
  Receive Date: 20131002
  Receipt Date: 20131002
  Transmission Date: 20140711
  Serious: No
  Sender: FDA-Public Use
  Company Number: US-AMGEN-USASP2013048026

PATIENT
  Age: 38 Year
  Sex: Male

DRUGS (3)
  1. ENBREL [Suspect]
     Indication: PRODUCT USED FOR UNKNOWN INDICATION
     Dosage: 50 MG, QWK
     Route: 058
  2. LEVOTHYROXIN [Concomitant]
     Dosage: 75 MUG, UNK
  3. TESTOSTERONE [Concomitant]
     Dosage: 100 MG/ML, UNK

REACTIONS (2)
  - Oropharyngeal pain [Unknown]
  - Asthenia [Unknown]
